FAERS Safety Report 20048158 (Version 5)
Quarter: 2022Q2

REPORT INFORMATION
  Report Type: Report from Study
  Country: US (occurrence: US)
  Receive Date: 20211109
  Receipt Date: 20220412
  Transmission Date: 20220721
  Serious: Yes (Other)
  Sender: FDA-Public Use
  Company Number: US-NOVARTISTESTPH-NVSC2021US255694

PATIENT
  Sex: Male

DRUGS (5)
  1. PROMACTA [Suspect]
     Active Substance: ELTROMBOPAG OLAMINE
     Indication: Immune thrombocytopenia
     Dosage: 50 MG, QD
     Route: 048
     Dates: start: 20211011
  2. PROMACTA [Suspect]
     Active Substance: ELTROMBOPAG OLAMINE
     Dosage: 25 MG, QD
     Route: 065
     Dates: start: 20211110
  3. PROMACTA [Suspect]
     Active Substance: ELTROMBOPAG OLAMINE
     Dosage: 50 MG, (MON-WED-FRI AND 25MG TUES-THURS-SAT-SUN)
     Route: 065
     Dates: start: 20211215
  4. PROMACTA [Suspect]
     Active Substance: ELTROMBOPAG OLAMINE
     Dosage: 50 MG (50 MG ON MONDAYS AND FRIDAYS ONLY. PATIENT TAKES 25MG FOR THE OTHER DAYS)
     Route: 065
     Dates: start: 20220124
  5. PROMACTA [Suspect]
     Active Substance: ELTROMBOPAG OLAMINE
     Dosage: 25 MG, QD
     Route: 048

REACTIONS (18)
  - Adrenocortical insufficiency acute [Unknown]
  - Steroid withdrawal syndrome [Unknown]
  - Night sweats [Unknown]
  - Blood pressure decreased [Unknown]
  - Pain [Unknown]
  - Steroid dependence [Unknown]
  - Sleep disorder [Unknown]
  - Tendon rupture [Unknown]
  - Platelet count decreased [Recovering/Resolving]
  - Impaired quality of life [Unknown]
  - Blood pressure abnormal [Unknown]
  - Herpes zoster [Unknown]
  - Feeling abnormal [Unknown]
  - Anger [Unknown]
  - Platelet count abnormal [Recovering/Resolving]
  - Fatigue [Unknown]
  - Cough [Unknown]
  - Platelet count increased [Recovering/Resolving]
